FAERS Safety Report 4380026-7 (Version None)
Quarter: 2004Q2

REPORT INFORMATION
  Report Type: 
  Country: None (occurrence: None)
  Receive Date: 20040614
  Receipt Date: 20040602
  Transmission Date: 20050107
  Serious: Yes (Death, Other)
  Sender: FDA-Public Use
  Company Number: 2004036864

PATIENT
  Age: 12 Year
  Sex: Male

DRUGS (1)
  1. VFEND [Suspect]
     Indication: APLASTIC ANAEMIA
     Dates: start: 20031107

REACTIONS (12)
  - ABSCESS [None]
  - CONFUSIONAL STATE [None]
  - DIALYSIS [None]
  - DYSPNOEA [None]
  - ENCEPHALITIS [None]
  - HALLUCINATION, VISUAL [None]
  - HEPATIC FAILURE [None]
  - HEPATOMEGALY [None]
  - HYPERNATRAEMIA [None]
  - KIDNEY ENLARGEMENT [None]
  - RENAL FAILURE [None]
  - TOXIC EPIDERMAL NECROLYSIS [None]
